FAERS Safety Report 18027787 (Version 1)
Quarter: 2020Q3

REPORT INFORMATION
  Report Type: Spontaneous
  Country: JP (occurrence: JP)
  Receive Date: 20200716
  Receipt Date: 20200716
  Transmission Date: 20201103
  Serious: Yes (Other)
  Sender: FDA-Public Use
  Company Number: JP-GUERBET-JP-20200101

PATIENT
  Age: 74 Year
  Sex: Male

DRUGS (1)
  1. LIPIODOL [Suspect]
     Active Substance: ETHIODIZED OIL
     Indication: LYMPHANGIOGRAM
     Route: 027
     Dates: start: 2018, end: 2018

REACTIONS (2)
  - Therapeutic response unexpected [Unknown]
  - Cholecystitis [Unknown]
